FAERS Safety Report 9466586 (Version 2)
Quarter: 2013Q4

REPORT INFORMATION
  Report Type: Spontaneous
  Country: RU (occurrence: RU)
  Receive Date: 20130820
  Receipt Date: 20131031
  Transmission Date: 20140711
  Serious: Yes (Other)
  Sender: FDA-Public Use
  Company Number: RU-PFIZER INC-2013236647

PATIENT
  Age: 64 Year
  Sex: 0

DRUGS (6)
  1. DEXAMETHASONE SODIUM PHOSPHATE [Suspect]
     Indication: CHRONIC MYELOID LEUKAEMIA
     Dosage: 20 MG AT 1-2, 4-5, 8-9, 11-12 DAYS OF THE CYCLE
  2. DEXAMETHASONE SODIUM PHOSPHATE [Suspect]
     Indication: PLASMA CELL MYELOMA
  3. VELCADE [Suspect]
     Indication: CHRONIC MYELOID LEUKAEMIA
     Dosage: 1.3 MG/M2, 1, 4, 8, 11 DAYS OF A 21-DAY CYCLE.
     Route: 042
  4. VELCADE [Suspect]
     Indication: PLASMA CELL MYELOMA
  5. IMATINIB [Suspect]
     Indication: CHRONIC MYELOID LEUKAEMIA
     Dosage: 400 MG, DAILY
     Dates: start: 20090105
  6. IMATINIB [Suspect]
     Indication: PLASMA CELL MYELOMA

REACTIONS (2)
  - Polyneuropathy [Recovering/Resolving]
  - Anaemia [Recovered/Resolved]
